FAERS Safety Report 12206923 (Version 1)
Quarter: 2016Q1

REPORT INFORMATION
  Report Type: Spontaneous
  Country: US (occurrence: None)
  Receive Date: 20160323
  Receipt Date: 20160323
  Transmission Date: 20160526
  Serious: Yes (Life-Threatening, Hospitalization)
  Sender: FDA-Public Use
  Company Number: None

PATIENT
  Age: 15 Year
  Sex: Female
  Weight: 52.16 kg

DRUGS (3)
  1. AUVI-Q [Suspect]
     Active Substance: EPINEPHRINE
     Indication: FOOD ALLERGY
     Dosage: .3 MG 2 INJECTORS AS NEEDED INJECTION
     Dates: start: 20150823, end: 20150823
  2. AUVI-Q [Suspect]
     Active Substance: EPINEPHRINE
     Indication: ANAPHYLACTIC SHOCK
     Dosage: .3 MG 2 INJECTORS AS NEEDED INJECTION
     Dates: start: 20150823, end: 20150823
  3. MULTI-VITAMIN [Concomitant]
     Active Substance: .ALPHA.-TOCOPHEROL ACETATE, DL-\ASCORBIC ACID\CYANOCOBALAMIN\FLUORIDE ION\FOLIC ACID\NIACIN\PYRIDOXINE\RIBOFLAVIN\THIAMINE\VITAMIN A\VITAMIN D

REACTIONS (11)
  - Pruritus [None]
  - Product quality issue [None]
  - Anaphylactic shock [None]
  - Loss of consciousness [None]
  - Pharyngeal oedema [None]
  - Dyspnoea [None]
  - Seizure [None]
  - Urticaria [None]
  - Erythema [None]
  - Incorrect dose administered [None]
  - Vomiting [None]

NARRATIVE: CASE EVENT DATE: 20150823
